FAERS Safety Report 8490101-3 (Version None)
Quarter: 2012Q2

REPORT INFORMATION
  Report Type: 
  Country: None (occurrence: None)
  Receive Date: 20120626
  Receipt Date: 20120611
  Transmission Date: 20120825
  Serious: Yes (Life-Threatening, Other)
  Sender: FDA-Public Use
  Company Number: 2012P1040841

PATIENT
  Age: 52 Year
  Sex: Male

DRUGS (9)
  1. LISINOPRIL [Concomitant]
  2. HYDRALAZINE HYDROCHLORIDE [Concomitant]
  3. WARFARIN SODIUM [Concomitant]
  4. AMIODAPONE [Concomitant]
  5. ISOSORBIDE MONONITRATE [Concomitant]
  6. DIGOXIN [Suspect]
  7. CARVEDILOL [Concomitant]
  8. SPIRONOLACTONE [Concomitant]
  9. FUROSEMIDE [Concomitant]

REACTIONS (10)
  - MENTAL STATUS CHANGES [None]
  - RENAL FAILURE ACUTE [None]
  - BRADYCARDIA [None]
  - ABDOMINAL PAIN [None]
  - NAUSEA [None]
  - HYPERKALAEMIA [None]
  - HYPOTENSION [None]
  - TOXICITY TO VARIOUS AGENTS [None]
  - VOMITING [None]
  - HALLUCINATION, AUDITORY [None]
